FAERS Safety Report 11743498 (Version 1)
Quarter: 2015Q4

REPORT INFORMATION
  Report Type: Spontaneous
  Country: GB (occurrence: GB)
  Receive Date: 20151116
  Receipt Date: 20151116
  Transmission Date: 20160304
  Serious: Yes (Hospitalization, Disabling, Other)
  Sender: FDA-Public Use
  Company Number: GB-BAYER-2015-463269

PATIENT
  Age: 31 Year
  Sex: Female
  Weight: 57.15 kg

DRUGS (1)
  1. YASMIN [Suspect]
     Active Substance: DROSPIRENONE\ETHINYL ESTRADIOL
     Indication: VAGINAL HAEMORRHAGE
     Dosage: 30 ?G, UNK
     Route: 048
     Dates: start: 2010, end: 201303

REACTIONS (17)
  - Eczema infected [Recovered/Resolved]
  - Libido decreased [Recovered/Resolved]
  - Vaginal discharge [Recovered/Resolved]
  - Agoraphobia [Recovered/Resolved]
  - Anxiety [Recovered/Resolved]
  - Ovarian germ cell teratoma benign [Recovered/Resolved]
  - Rash generalised [Recovered/Resolved]
  - Depression [Recovered/Resolved]
  - Feeling abnormal [Recovered/Resolved]
  - Pain [Recovered/Resolved]
  - Panic attack [Recovered/Resolved]
  - Musculoskeletal discomfort [Recovered/Resolved]
  - Suicidal ideation [Recovered/Resolved]
  - Insomnia [Recovered/Resolved]
  - Social fear [Recovered/Resolved]
  - Dyspareunia [Recovered/Resolved]
  - Disturbance in attention [Recovered/Resolved]

NARRATIVE: CASE EVENT DATE: 201106
